FAERS Safety Report 4765374-0 (Version None)
Quarter: 2005Q3

REPORT INFORMATION
  Report Type: 
  Country: None (occurrence: None)
  Receive Date: 20050908
  Receipt Date: 20050908
  Transmission Date: 20060218
  Serious: Yes (Hospitalization)
  Sender: FDA-Public Use
  Company Number: None

PATIENT
  Age: 49 Year
  Sex: Male

DRUGS (10)
  1. BIAXIN [Suspect]
     Indication: MULTIPLE MYELOMA
  2. CC5013 40 MG PO BID [Suspect]
  3. DEXAMETHASONE [Suspect]
  4. MS CONTIN [Concomitant]
  5. DILAUDID [Concomitant]
  6. COMPAZINE [Concomitant]
  7. ASPIRIN [Concomitant]
  8. BACTRIM [Concomitant]
  9. NEXIUM [Concomitant]
  10. ALLOPURINOL [Concomitant]

REACTIONS (7)
  - ASTHENIA [None]
  - DYSPHAGIA [None]
  - FATIGUE [None]
  - NAUSEA [None]
  - PANCYTOPENIA [None]
  - RENAL FAILURE ACUTE [None]
  - TACHYCARDIA [None]
